FAERS Safety Report 9485913 (Version 1)
Quarter: 2013Q3

REPORT INFORMATION
  Report Type: Spontaneous
  Country: BR (occurrence: BR)
  Receive Date: 20130829
  Receipt Date: 20130829
  Transmission Date: 20140515
  Serious: Yes (Other)
  Sender: FDA-Public Use
  Company Number: BR-ASTRAZENECA-2013SE64843

PATIENT
  Sex: Male
  Weight: 92 kg

DRUGS (2)
  1. ATACAND [Suspect]
     Indication: HYPERTENSION
     Dosage: DAILY
     Route: 048
     Dates: start: 201305
  2. SIMVASTATIN [Concomitant]
     Indication: BLOOD CHOLESTEROL INCREASED

REACTIONS (1)
  - Coronary artery occlusion [Unknown]
